FAERS Safety Report 17722589 (Version 1)
Quarter: 2020Q2

REPORT INFORMATION
  Report Type: Spontaneous
  Country: US (occurrence: US)
  Receive Date: 20200429
  Receipt Date: 20200429
  Transmission Date: 20200714
  Serious: No
  Sender: FDA-Public Use
  Company Number: US-JNJFOC-20200432419

PATIENT
  Age: 59 Year
  Sex: Male

DRUGS (3)
  1. DEXAMETHASONE. [Concomitant]
     Active Substance: DEXAMETHASONE
  2. DARZALEX [Suspect]
     Active Substance: DARATUMUMAB
     Indication: PLASMA CELL MYELOMA
     Route: 065
     Dates: start: 201902
  3. VELCADE [Suspect]
     Active Substance: BORTEZOMIB

REACTIONS (3)
  - Infusion related reaction [Recovering/Resolving]
  - Product dose omission [Unknown]
  - Blood immunoglobulin G decreased [Unknown]

NARRATIVE: CASE EVENT DATE: 201902
